FAERS Safety Report 9816276 (Version 4)
Quarter: 2014Q1

REPORT INFORMATION
  Report Type: Spontaneous
  Country: US (occurrence: US)
  Receive Date: 20140114
  Receipt Date: 20140325
  Transmission Date: 20141002
  Serious: Yes (Death, Other)
  Sender: FDA-Public Use
  Company Number: US-INCYTE CORPORATION-2014IN000057

PATIENT
  Age: 66 Year
  Sex: Female
  Weight: 77 kg

DRUGS (18)
  1. JAKAFI [Suspect]
     Indication: MYELOFIBROSIS
     Dosage: 20 MG, BID
     Route: 048
     Dates: start: 20120203, end: 20140107
  2. LOVENOX [Suspect]
     Dosage: 80 MG, QD
     Route: 058
     Dates: start: 20130829, end: 20131227
  3. GS6624 -GILEAD CLINICAL TRIAL [Concomitant]
     Dosage: WEEKLY INFUSIONS
     Route: 042
     Dates: start: 20130925, end: 20140103
  4. EXJADE [Concomitant]
     Dosage: 500 MG, 2 TABLETS DISSOLVED AC QD
     Dates: start: 20130305, end: 20140107
  5. TRAMADOL [Concomitant]
     Dosage: 50 MG, TID
     Route: 048
  6. GABAPENTIN [Concomitant]
     Dosage: 800 MG, TID
     Route: 048
  7. LISINOPRIL [Concomitant]
  8. ASPIRIN [Concomitant]
     Dosage: 81 MG, QD
     Route: 048
  9. PRILOSEC                           /00661201/ [Concomitant]
     Dosage: 20 MG, QD
     Route: 048
  10. METOPROLOL [Concomitant]
  11. CELEXA                             /00582602/ [Concomitant]
     Dosage: 20 MG, QD
     Route: 048
  12. MELATONIN [Concomitant]
  13. CITRICAL                           /00751501/ [Concomitant]
     Dosage: 1 DF, BID
  14. PLAVIX [Concomitant]
  15. COREG [Concomitant]
     Dosage: 3.125 MG, BID
     Route: 048
     Dates: start: 20120112
  16. FUROSEMIDE [Concomitant]
     Dosage: 20 MG, QOD
     Route: 048
     Dates: start: 20100719
  17. LORAZEPAM [Concomitant]
     Dosage: 1 MG, 1/2 TO 1 TABLET PRN
     Route: 048
     Dates: start: 20130823
  18. VITAMIN B 12 [Concomitant]
     Dosage: 1000 MCG, BID
     Dates: start: 20131123

REACTIONS (5)
  - Haemorrhage intracranial [Fatal]
  - Pulmonary embolism [Unknown]
  - Transfusion [Unknown]
  - Iron overload [Unknown]
  - Mouth injury [Unknown]
